FAERS Safety Report 18339043 (Version 1)
Quarter: 2020Q3

REPORT INFORMATION
  Report Type: Spontaneous
  Country: US (occurrence: US)
  Receive Date: 20200930
  Receipt Date: 20200930
  Transmission Date: 20201103
  Serious: Yes (Life-Threatening)
  Sender: FDA-Public Use
  Company Number: None

PATIENT
  Age: 50 Year
  Sex: Male

DRUGS (1)
  1. PRAZOSIN (PRAZOSIN HCL 1MG CAP) [Suspect]
     Active Substance: PRAZOSIN HYDROCHLORIDE
     Route: 048
     Dates: start: 20200717, end: 20200730

REACTIONS (3)
  - Palpitations [None]
  - Pyrexia [None]
  - Suicidal ideation [None]

NARRATIVE: CASE EVENT DATE: 20200730
